FAERS Safety Report 4918690-3 (Version None)
Quarter: 2006Q1

REPORT INFORMATION
  Report Type: 
  Country: None (occurrence: None)
  Receive Date: 20060221
  Receipt Date: 20060221
  Transmission Date: 20060701
  Serious: Yes (Other)
  Sender: FDA-Public Use
  Company Number: None

PATIENT
  Sex: Female
  Weight: 72.5755 kg

DRUGS (2)
  1. HYDROCODONE 7.5 (WATSON) [Suspect]
     Indication: BREAKTHROUGH PAIN
     Dosage: 1 8 HR PO
     Route: 048
     Dates: start: 20040515, end: 20040525
  2. HYDROCODONE 7.5 (WATSON) [Suspect]
     Indication: MULTIPLE SCLEROSIS
     Dosage: 1 8 HR PO
     Route: 048
     Dates: start: 20040515, end: 20040525

REACTIONS (4)
  - HEADACHE [None]
  - NAUSEA [None]
  - TINNITUS [None]
  - VOMITING [None]
